FAERS Safety Report 7546047-8 (Version None)
Quarter: 2011Q2

REPORT INFORMATION
  Report Type: 
  Country: None (occurrence: None)
  Receive Date: 20110614
  Receipt Date: 20110601
  Transmission Date: 20111010
  Serious: Yes (Other)
  Sender: FDA-Public Use
  Company Number: PHHY2011US43954

PATIENT
  Age: 45 Year
  Sex: Female

DRUGS (5)
  1. FOCALIN XR [Suspect]
     Dosage: 10 MG, UNK
  2. STRATTERA [Suspect]
     Dosage: UNK UKN, UNK
  3. GUANFACINE HYDROCHLORIDE [Concomitant]
     Dosage: UNK UKN, UNK
  4. FEXOFENADINE [Concomitant]
     Dosage: UNK UKN, UNK
  5. PRILOSEC [Concomitant]
     Dosage: UNK UKN, UNK

REACTIONS (9)
  - DEPRESSED MOOD [None]
  - BLOOD PRESSURE INCREASED [None]
  - NAUSEA [None]
  - APATHY [None]
  - ABDOMINAL PAIN UPPER [None]
  - INCORRECT DOSE ADMINISTERED [None]
  - WITHDRAWAL SYNDROME [None]
  - FEELING ABNORMAL [None]
  - DEPRESSION [None]
